FAERS Safety Report 20391813 (Version 1)
Quarter: 2022Q1

REPORT INFORMATION
  Report Type: Spontaneous
  Country: US (occurrence: US)
  Receive Date: 20220128
  Receipt Date: 20220128
  Transmission Date: 20220423
  Serious: No
  Sender: FDA-Public Use
  Company Number: US-GLENMARK PHARMACEUTICALS-2021GMK067947

PATIENT
  Age: 68 Year
  Sex: Male
  Weight: 73.8 kg

DRUGS (2)
  1. ESZOPICLONE [Suspect]
     Active Substance: ESZOPICLONE
     Indication: Insomnia
     Dosage: 1 DOSAGE FORM, HS
     Route: 065
     Dates: start: 20210722
  2. NEXIUM I.V. [Concomitant]
     Active Substance: ESOMEPRAZOLE SODIUM
     Indication: Product used for unknown indication
     Dosage: UNK
     Route: 065

REACTIONS (2)
  - Drug ineffective [Unknown]
  - Product substitution issue [Unknown]
